FAERS Safety Report 5738820-3 (Version None)
Quarter: 2008Q2

REPORT INFORMATION
  Report Type: 
  Country: None (occurrence: None)
  Receive Date: 20080515
  Receipt Date: 20080321
  Transmission Date: 20081010
  Serious: No
  Sender: FDA-Public Use
  Company Number: A0716789A

PATIENT
  Age: 72 Year
  Sex: Male

DRUGS (2)
  1. VERAMYST [Suspect]
     Indication: PNEUMONIA
     Dosage: 4SPR PER DAY
     Route: 045
     Dates: start: 20080301, end: 20080317
  2. MULTIPLE MEDICATIONS [Concomitant]

REACTIONS (1)
  - EPISTAXIS [None]
